FAERS Safety Report 4798869-4 (Version None)
Quarter: 2005Q4

REPORT INFORMATION
  Report Type: 
  Country: None (occurrence: None)
  Receive Date: 20051014
  Receipt Date: 20051010
  Transmission Date: 20060501
  Serious: Yes (Other)
  Sender: FDA-Public Use
  Company Number: AU-GLAXOSMITHKLINE-B0396958A

PATIENT
  Sex: Female

DRUGS (1)
  1. ZYBAN [Suspect]
     Route: 048

REACTIONS (2)
  - AGGRESSION [None]
  - MOOD SWINGS [None]
